FAERS Safety Report 5374646-0 (Version None)
Quarter: 2007Q2

REPORT INFORMATION
  Report Type: 
  Country: None (occurrence: None)
  Receive Date: 20070625
  Receipt Date: 20070321
  Transmission Date: 20071010
  Serious: Yes (Death)
  Sender: FDA-Public Use
  Company Number: 07P-163-0359749-00

PATIENT
  Age: 87 Year
  Sex: Male
  Weight: 81.6475 kg

DRUGS (1)
  1. HUMIRA [Suspect]
     Indication: RHEUMATOID ARTHRITIS
     Dosage: 40 MG, 1 IN 2 WK, SUBCUTANEOUS
     Route: 058
     Dates: start: 20040101, end: 20070210

REACTIONS (2)
  - KIDNEY INFECTION [None]
  - PNEUMONIA [None]
